FAERS Safety Report 20683318 (Version 1)
Quarter: 2022Q2

REPORT INFORMATION
  Report Type: Spontaneous
  Country: US (occurrence: US)
  Receive Date: 20220407
  Receipt Date: 20220407
  Transmission Date: 20220720
  Serious: Yes (Death, Other)
  Sender: FDA-Public Use
  Company Number: US-SA-SAC20220406000876

PATIENT
  Age: 77 Year
  Sex: Male

DRUGS (1)
  1. ZANTAC [Suspect]
     Active Substance: RANITIDINE HYDROCHLORIDE
     Indication: Dyspepsia
     Dosage: UNK, QD
     Route: 065
     Dates: start: 200507, end: 200704

REACTIONS (4)
  - Bladder cancer [Fatal]
  - Renal cancer [Fatal]
  - Gastric cancer [Fatal]
  - Urethral cancer [Fatal]

NARRATIVE: CASE EVENT DATE: 20070301
